FAERS Safety Report 23394204 (Version 1)
Quarter: 2024Q1

REPORT INFORMATION
  Report Type: Spontaneous
  Country: FR (occurrence: FR)
  Receive Date: 20240111
  Receipt Date: 20240111
  Transmission Date: 20240410
  Serious: Yes (Life-Threatening, Other)
  Sender: FDA-Public Use
  Company Number: FR-AFSSAPS-AM20211335

PATIENT
  Age: 73 Year
  Sex: Male

DRUGS (18)
  1. ACETAMINOPHEN [Suspect]
     Active Substance: ACETAMINOPHEN
     Indication: Pain prophylaxis
     Dosage: DOSE DESCRIPTION : 1 G, TOTAL?ROA: INTRAVENOUS?FORM: UNKNOWN
     Route: 042
     Dates: start: 20210415, end: 20210415
  2. DEXAMETHASONE [Suspect]
     Active Substance: DEXAMETHASONE
     Indication: Prophylaxis of nausea and vomiting
     Dosage: DOSE DESCRIPTION : 4 MG, TOTAL?ROA: INTRAMUSCULAR
     Dates: start: 20210415, end: 20210415
  3. AMOXICILLIN\CLAVULANIC ACID [Suspect]
     Active Substance: AMOXICILLIN\CLAVULANIC ACID
     Indication: Antibiotic prophylaxis
     Dosage: ROA: INTRAVENOUS?FORM: UNKNOWN
     Dates: start: 20210415, end: 20210415
  4. DROPERIDOL [Suspect]
     Active Substance: DROPERIDOL
     Indication: Anaesthesia
     Dosage: 1.25 MG?ROA: INTRAVENOUS?FORM: UNKNOWN
     Dates: start: 20210415, end: 20210415
  5. ALFENTANIL HYDROCHLORIDE [Suspect]
     Active Substance: ALFENTANIL HYDROCHLORIDE
     Indication: Anaesthesia
     Dosage: ROA: IV
     Dates: start: 20210415, end: 20210415
  6. AMOXICILLIN [Suspect]
     Active Substance: AMOXICILLIN
     Indication: Antibiotic prophylaxis
     Dosage: DOSE DESCRIPTION : 2 G, TOTAL?ROA: IV
     Dates: start: 20210415, end: 20210415
  7. ESOMEPRAZOLE [Concomitant]
     Active Substance: ESOMEPRAZOLE
     Indication: Product used for unknown indication
     Dosage: FORM AND ROA: UNKNOWN
  8. SYMBICORT [Concomitant]
     Active Substance: BUDESONIDE\FORMOTEROL FUMARATE DIHYDRATE
     Indication: Product used for unknown indication
     Dosage: FORM AND ROA: UNKNOWN
  9. SITAGLIPTIN PHOSPHATE [Concomitant]
     Active Substance: SITAGLIPTIN PHOSPHATE
     Indication: Product used for unknown indication
     Dosage: FORM AND ROA: UNKNOWN
  10. GLICLAZIDE [Concomitant]
     Active Substance: GLICLAZIDE
     Indication: Product used for unknown indication
     Dosage: FORM AND ROA: UNKNOWN
  11. HYDROCHLOROTHIAZIDE [Concomitant]
     Active Substance: HYDROCHLOROTHIAZIDE
     Indication: Product used for unknown indication
     Dosage: FORM AND ROA: UNKNOWN
  12. NASONEX [Concomitant]
     Active Substance: MOMETASONE FUROATE
     Indication: Product used for unknown indication
     Dosage: FORM AND ROA: UNKNOWN
  13. CAPTOPRIL [Concomitant]
     Active Substance: CAPTOPRIL
     Dosage: FORM AND ROA: UNKNOWN
  14. CAPTOPRIL [Concomitant]
     Active Substance: CAPTOPRIL
     Indication: Product used for unknown indication
  15. PROPOFOL LIPUROG [Concomitant]
     Indication: Anaesthesia
     Dosage: DOSE DESCRIPTION : 400 MG, TOTAL?ROA: IV
     Dates: start: 20210415, end: 20210415
  16. LERCANIDIPINE [Concomitant]
     Active Substance: LERCANIDIPINE
     Indication: Product used for unknown indication
  17. LEVOTHYROXINE [Concomitant]
     Active Substance: LEVOTHYROXINE
     Indication: Product used for unknown indication
  18. SIMVASTATIN [Concomitant]
     Active Substance: SIMVASTATIN
     Indication: Product used for unknown indication
     Dosage: FORM AND ROA: UNKNOWN

REACTIONS (1)
  - Anaphylactic shock [Recovered/Resolved]

NARRATIVE: CASE EVENT DATE: 20210415
